FAERS Safety Report 25766179 (Version 1)
Quarter: 2025Q3

REPORT INFORMATION
  Report Type: Spontaneous
  Country: US (occurrence: US)
  Receive Date: 20250905
  Receipt Date: 20250905
  Transmission Date: 20251021
  Serious: No
  Sender: DOMPE FARMACEUTICI
  Company Number: US-FARMAPROD-202408-2874

PATIENT
  Age: 81 Year
  Sex: Female
  Weight: 49.9 kg

DRUGS (20)
  1. OXERVATE [Suspect]
     Active Substance: CENEGERMIN-BKBJ
     Indication: Neurotrophic keratopathy
     Route: 047
     Dates: start: 20231114, end: 20240109
  2. OXERVATE [Suspect]
     Active Substance: CENEGERMIN-BKBJ
     Route: 047
     Dates: start: 20240628
  3. OXERVATE [Suspect]
     Active Substance: CENEGERMIN-BKBJ
  4. PREDNISOLONE ACETATE [Concomitant]
     Active Substance: PREDNISOLONE ACETATE
  5. UNSPECIFIED INGREDIENT [Concomitant]
     Active Substance: UNSPECIFIED INGREDIENT
  6. RESTASIS [Concomitant]
     Active Substance: CYCLOSPORINE
  7. HERBALS\TURMERIC [Concomitant]
     Active Substance: HERBALS\TURMERIC
  8. OMEGA 3 [Concomitant]
     Active Substance: CAPSAICIN
  9. VITAMIN C [Concomitant]
     Active Substance: ASCORBIC ACID
  10. AMLODIPINE BESYLATE [Concomitant]
     Active Substance: AMLODIPINE BESYLATE
  11. ACYCLOVIR [Concomitant]
     Active Substance: ACYCLOVIR
  12. VITAMINS [Concomitant]
     Active Substance: VITAMINS
  13. ZINC [Concomitant]
     Active Substance: ZINC
  14. CALCIUM [Concomitant]
     Active Substance: CALCIUM
  15. MAGNESIUM [Concomitant]
     Active Substance: MAGNESIUM
  16. INOSITOL [Concomitant]
     Active Substance: INOSITOL
  17. FIBER THERAPY (CALCIUM POLYCARBOPHIL) [Concomitant]
     Active Substance: CALCIUM POLYCARBOPHIL
  18. GINKGO [Concomitant]
     Active Substance: GINKGO
  19. SIMVASTATIN [Concomitant]
     Active Substance: SIMVASTATIN
  20. CHLORHEXIDINE GLUCONATE [Concomitant]
     Active Substance: CHLORHEXIDINE GLUCONATE

REACTIONS (6)
  - Fall [Not Recovered/Not Resolved]
  - Eye swelling [Not Recovered/Not Resolved]
  - Face injury [Not Recovered/Not Resolved]
  - Joint injury [Not Recovered/Not Resolved]
  - Product dose omission issue [Unknown]
  - Device use issue [Unknown]

NARRATIVE: CASE EVENT DATE: 20240815
